FAERS Safety Report 13206283 (Version 1)
Quarter: 2017Q1

REPORT INFORMATION
  Report Type: Spontaneous
  Country: US (occurrence: US)
  Receive Date: 20170208
  Receipt Date: 20170208
  Transmission Date: 20170428
  Serious: No
  Sender: FDA-Public Use
  Company Number: US-AMGEN-USASP2016134264

PATIENT
  Sex: Female

DRUGS (5)
  1. PACLITAXEL. [Suspect]
     Active Substance: PACLITAXEL
     Indication: SARCOMA UTERUS
     Dosage: UNK UNK, Q3WK
     Route: 065
  2. ADVIL [Concomitant]
     Active Substance: IBUPROFEN
     Dosage: UNK
  3. IFOSFAMIDE. [Suspect]
     Active Substance: IFOSFAMIDE
     Indication: SARCOMA UTERUS
     Dosage: UNK UNK, Q3WK
     Route: 065
  4. MESNEX [Suspect]
     Active Substance: MESNA
     Indication: SARCOMA UTERUS
     Dosage: UNK UNK, Q3WK
     Route: 065
  5. NEULASTA [Suspect]
     Active Substance: PEGFILGRASTIM
     Indication: PRODUCT USED FOR UNKNOWN INDICATION
     Dosage: UNK, Q3WK
     Route: 065

REACTIONS (4)
  - Surgery [Unknown]
  - Pain in jaw [Unknown]
  - Alopecia [Recovered/Resolved]
  - Dysgeusia [Recovered/Resolved]
